FAERS Safety Report 6708351-2 (Version None)
Quarter: 2010Q2

REPORT INFORMATION
  Report Type: 
  Country: None (occurrence: None)
  Receive Date: 20100503
  Receipt Date: 20090724
  Transmission Date: 20101027
  Serious: No
  Sender: FDA-Public Use
  Company Number: US-ASTRAZENECA-2009SE06143

PATIENT
  Age: 86 Year
  Sex: Female

DRUGS (2)
  1. NEXIUM [Suspect]
     Route: 048
     Dates: start: 20090723, end: 20090723
  2. NEXIUM [Suspect]
     Route: 048
     Dates: start: 20090724

REACTIONS (1)
  - PRE-EXISTING CONDITION IMPROVED [None]
